FAERS Safety Report 8820634 (Version 3)
Quarter: 2013Q1

REPORT INFORMATION
  Report Type: Report from Study
  Country: CA (occurrence: CA)
  Receive Date: 20121002
  Receipt Date: 20130122
  Transmission Date: 20140127
  Serious: Yes (Death, Hospitalization)
  Sender: FDA-Public Use
  Company Number: CA-JNJFOC-20120911216

PATIENT
  Age: 63 None
  Sex: Female
  Weight: 87.09 kg

DRUGS (1)
  1. INFLIXIMAB, RECOMBINANT [Suspect]
     Indication: PSORIASIS
     Route: 042
     Dates: start: 201106, end: 2012

REACTIONS (3)
  - Sepsis [Fatal]
  - Pancytopenia [Fatal]
  - Small cell lung cancer [Fatal]
